FAERS Safety Report 5492822-3 (Version None)
Quarter: 2007Q4

REPORT INFORMATION
  Report Type: 
  Country: None (occurrence: None)
  Receive Date: 20071019
  Receipt Date: 20071010
  Transmission Date: 20080405
  Serious: Yes (Other)
  Sender: FDA-Public Use
  Company Number: 17632

PATIENT
  Sex: Female

DRUGS (3)
  1. EPIRUBICIN [Suspect]
     Indication: LUNG NEOPLASM
     Dosage: 450 MG/M2
  2. CARBOPLATIN [Concomitant]
  3. VINCRISTINE [Concomitant]

REACTIONS (15)
  - BLOOD CREATINE PHOSPHOKINASE INCREASED [None]
  - BRAIN NATRIURETIC PEPTIDE INCREASED [None]
  - CARDIAC FAILURE ACUTE [None]
  - COUGH [None]
  - DILATATION VENTRICULAR [None]
  - EJECTION FRACTION DECREASED [None]
  - GALLOP RHYTHM PRESENT [None]
  - HEPATIC FUNCTION ABNORMAL [None]
  - HYPERHIDROSIS [None]
  - LEFT VENTRICULAR DYSFUNCTION [None]
  - MITRAL VALVE INCOMPETENCE [None]
  - MULTI-ORGAN FAILURE [None]
  - PARVOVIRUS INFECTION [None]
  - RENAL IMPAIRMENT [None]
  - TACHYPNOEA [None]
